FAERS Safety Report 9473740 (Version 3)
Quarter: 2013Q4

REPORT INFORMATION
  Report Type: Spontaneous
  Country: US (occurrence: US)
  Receive Date: 20130823
  Receipt Date: 20131018
  Transmission Date: 20140711
  Serious: Yes (Other)
  Sender: FDA-Public Use
  Company Number: US-BANPHARM-20131583

PATIENT
  Age: 81 Year
  Sex: Male
  Weight: 89.36 kg

DRUGS (4)
  1. ZYRTEC LIQUID GELS 10 MG [Suspect]
     Indication: RHINORRHOEA
     Dosage: 1 DF, QD,
     Route: 048
  2. COUMADIN [Concomitant]
     Dosage: QD,
     Dates: start: 1997
  3. VERAPAMIL [Concomitant]
     Indication: CARDIAC DISORDER
     Dosage: QD,
     Dates: start: 1997
  4. SIMVASTATIN [Concomitant]
     Indication: BLOOD CHOLESTEROL
     Dosage: QD,
     Dates: start: 1997

REACTIONS (3)
  - Intestinal obstruction [Recovered/Resolved]
  - Constipation [Recovered/Resolved]
  - Faecaloma [Recovered/Resolved]
